FAERS Safety Report 10716691 (Version 1)
Quarter: 2015Q1

REPORT INFORMATION
  Report Type: Spontaneous
  Country: US (occurrence: US)
  Receive Date: 20150116
  Receipt Date: 20150116
  Transmission Date: 20150721
  Serious: No
  Sender: FDA-Public Use
  Company Number: US-009507513-1501USA005743

PATIENT
  Sex: Female
  Weight: 63.49 kg

DRUGS (1)
  1. NUVARING [Suspect]
     Active Substance: ETHINYL ESTRADIOL\ETONOGESTREL
     Indication: POLYCYSTIC OVARIES
     Dosage: 1 RING 3 WEEKS, 1 WEEK OUT
     Route: 067
     Dates: start: 2006

REACTIONS (2)
  - Drug administration error [Unknown]
  - Device expulsion [Unknown]

NARRATIVE: CASE EVENT DATE: 2006
